FAERS Safety Report 14742089 (Version 3)
Quarter: 2018Q2

REPORT INFORMATION
  Report Type: Report from Study
  Country: CZ (occurrence: CZ)
  Receive Date: 20180410
  Receipt Date: 20180417
  Transmission Date: 20180711
  Serious: Yes (Death)
  Sender: FDA-Public Use
  Company Number: CZ-PFIZER INC-2018142627

PATIENT
  Age: 77 Year
  Sex: Female
  Weight: 88 kg

DRUGS (21)
  1. ROSUCARD [Concomitant]
     Active Substance: ROSUVASTATIN CALCIUM
     Dosage: 20 MG, DAILY
     Route: 048
     Dates: start: 200910
  2. CANOCORD [Concomitant]
     Dosage: 1 DF, 2X/DAY
     Route: 048
     Dates: start: 20151124
  3. CANOCORD [Concomitant]
     Dosage: 8 MG, 2X/DAY
     Route: 048
     Dates: start: 20170105
  4. HEPAROID [Concomitant]
     Dosage: UNK
     Route: 061
     Dates: start: 201604
  5. OMEPRAZOL [Concomitant]
     Active Substance: OMEPRAZOLE
     Dosage: 20 MG, 2X/DAY
     Route: 048
     Dates: start: 20160112
  6. LIDOCAIN /00033401/ [Concomitant]
     Active Substance: LIDOCAINE
     Dosage: 10 UNK, UNK, ORAL/TRANSMUCOSAL
     Route: 048
     Dates: start: 20170302
  7. CLEXANE [Concomitant]
     Active Substance: ENOXAPARIN SODIUM
     Dosage: UNK
     Route: 042
     Dates: start: 201701
  8. GLUCOPHAGE [Concomitant]
     Active Substance: METFORMIN HYDROCHLORIDE
     Dosage: 500 MG, DAILY
     Route: 048
     Dates: start: 20151005
  9. ATORIS [Concomitant]
     Active Substance: ATORVASTATIN CALCIUM
     Dosage: 20 MG, UNK, EVERY OTHER DAY
     Route: 048
     Dates: start: 20151124
  10. DONEPEZIL. [Concomitant]
     Active Substance: DONEPEZIL
     Dosage: 5 MG, DAILY
     Route: 048
     Dates: start: 20150308
  11. TRALGIT [Concomitant]
     Active Substance: TRAMADOL
     Dosage: 100 MG, AS NEEDED
     Route: 048
     Dates: start: 20150731
  12. TELMIZEK [Concomitant]
     Dosage: 80 MG, DAILY
     Route: 048
     Dates: start: 20170406
  13. BOSUTINIB [Suspect]
     Active Substance: BOSUTINIB
     Dosage: 300 MG, UNK
     Dates: start: 20150505
  14. XARELTO [Concomitant]
     Active Substance: RIVAROXABAN
     Dosage: 10 MG, DAILY
     Route: 048
     Dates: start: 20170118
  15. MESOCAIN /00189902/ [Concomitant]
     Dosage: 1 %, SINGLE
     Route: 058
     Dates: start: 20150505, end: 20150505
  16. MESOCAIN /00189902/ [Concomitant]
     Dosage: 1 %, SINGLE
     Route: 058
     Dates: start: 20150728, end: 20150728
  17. VESICARE [Concomitant]
     Active Substance: SOLIFENACIN SUCCINATE
     Dosage: 1 DF, DAILY
     Route: 048
     Dates: start: 20170925
  18. BOSUTINIB [Suspect]
     Active Substance: BOSUTINIB
     Dosage: 400 MG, UNK
     Dates: start: 20150210
  19. RENPRESS [Concomitant]
     Dosage: 6 MG, DAILY
     Route: 048
     Dates: start: 200206
  20. ITOPRID [Concomitant]
     Dosage: 50 MG, 3X/DAY
     Route: 048
     Dates: start: 20170302
  21. EUTHYROX [Concomitant]
     Active Substance: LEVOTHYROXINE SODIUM
     Dosage: 125 UG, 1X/DAY
     Route: 048
     Dates: start: 20170105

REACTIONS (1)
  - Acute kidney injury [Fatal]

NARRATIVE: CASE EVENT DATE: 20180401
